FAERS Safety Report 24086650 (Version 1)
Quarter: 2024Q3

REPORT INFORMATION
  Report Type: Spontaneous
  Country: FR (occurrence: FR)
  Receive Date: 20240713
  Receipt Date: 20240713
  Transmission Date: 20241017
  Serious: Yes (Hospitalization)
  Sender: ROCHE
  Company Number: None

PATIENT
  Age: 79 Year
  Sex: Male
  Weight: 98 kg

DRUGS (1)
  1. TECENTRIQ [Suspect]
     Active Substance: ATEZOLIZUMAB
     Indication: Bladder cancer
     Route: 042
     Dates: start: 20230228, end: 20240110

REACTIONS (4)
  - Hepatic cytolysis [Recovered/Resolved]
  - Arthralgia [Not Recovered/Not Resolved]
  - Cholestasis [Recovered/Resolved]
  - Sjogren^s syndrome [Not Recovered/Not Resolved]

NARRATIVE: CASE EVENT DATE: 20230502
